FAERS Safety Report 24772314 (Version 1)
Quarter: 2024Q4

REPORT INFORMATION
  Report Type: Spontaneous
  Country: US (occurrence: US)
  Receive Date: 20241224
  Receipt Date: 20241224
  Transmission Date: 20250115
  Serious: No
  Sender: MERCK
  Company Number: US-009507513-2412USA007098

PATIENT
  Age: 42 Year
  Sex: Male

DRUGS (3)
  1. TEMODAR [Suspect]
     Active Substance: TEMOZOLOMIDE
     Indication: Neuroendocrine tumour
     Dosage: UNK UNK, EVERY 4 WEEKS
     Route: 048
  2. CAPECITABINE [Concomitant]
     Active Substance: CAPECITABINE
     Indication: Neuroendocrine tumour
     Dosage: UNK, EVERY 4 WEEKS
  3. OCTREOTIDE [Concomitant]
     Active Substance: OCTREOTIDE
     Indication: Neuroendocrine tumour
     Dosage: 20 MILLIGRAM, EVERY 4 WEEKS

REACTIONS (1)
  - Product use in unapproved indication [Unknown]
